FAERS Safety Report 6355258-9 (Version None)
Quarter: 2009Q3

REPORT INFORMATION
  Report Type: 
  Country: None (occurrence: None)
  Receive Date: 20090914
  Receipt Date: 20090904
  Transmission Date: 20100115
  Serious: Yes (Hospitalization, Other)
  Sender: FDA-Public Use
  Company Number: US-ROCHE-632807

PATIENT
  Sex: Male
  Weight: 77.1 kg

DRUGS (4)
  1. ACCUTANE [Suspect]
     Route: 048
     Dates: start: 20030121, end: 20030209
  2. ACCUTANE [Suspect]
     Route: 048
     Dates: end: 20030301
  3. CLINDAMYCIN [Concomitant]
     Dosage: EVERY MORNING
  4. BREVOXYL [Concomitant]

REACTIONS (32)
  - AMNESIA [None]
  - ANAEMIA MACROCYTIC [None]
  - ANXIETY [None]
  - ARTHRALGIA [None]
  - ARTHRITIS REACTIVE [None]
  - COLITIS ULCERATIVE [None]
  - DEHYDRATION [None]
  - DEPRESSION [None]
  - DISTURBANCE IN ATTENTION [None]
  - DYSPEPSIA [None]
  - FATIGUE [None]
  - FEAR [None]
  - GASTRITIS [None]
  - GASTROINTESTINAL DISORDER [None]
  - GASTROOESOPHAGEAL REFLUX DISEASE [None]
  - HAEMORRHOIDS [None]
  - HEADACHE [None]
  - HERNIA [None]
  - HIATUS HERNIA [None]
  - HYPERCHROMIC ANAEMIA [None]
  - HYPERTENSION [None]
  - HYPOVITAMINOSIS [None]
  - INFLAMMATORY BOWEL DISEASE [None]
  - IRRITABLE BOWEL SYNDROME [None]
  - MOUTH ULCERATION [None]
  - ORAL CANDIDIASIS [None]
  - PYREXIA [None]
  - RECTAL HAEMORRHAGE [None]
  - STRESS [None]
  - SUICIDAL IDEATION [None]
  - SWELLING [None]
  - WEIGHT DECREASED [None]
